FAERS Safety Report 22848765 (Version 5)
Quarter: 2024Q1

REPORT INFORMATION
  Report Type: Spontaneous
  Country: US (occurrence: US)
  Receive Date: 20230822
  Receipt Date: 20240129
  Transmission Date: 20240410
  Serious: No
  Sender: FDA-Public Use
  Company Number: US-BRISTOL-MYERS SQUIBB COMPANY-2023-117919

PATIENT
  Age: 35 Year
  Sex: Male

DRUGS (1)
  1. ZEPOSIA [Suspect]
     Active Substance: OZANIMOD HYDROCHLORIDE
     Indication: Multiple sclerosis
     Route: 048
     Dates: start: 202308

REACTIONS (7)
  - Multiple sclerosis relapse [Unknown]
  - Therapeutic response decreased [Unknown]
  - Muscle rigidity [Unknown]
  - Mental status changes [Unknown]
  - Hyperhidrosis [Unknown]
  - General physical health deterioration [Unknown]
  - Tremor [Unknown]
